FAERS Safety Report 11444696 (Version 1)
Quarter: 2015Q3

REPORT INFORMATION
  Report Type: Spontaneous
  Country: US (occurrence: None)
  Receive Date: 20150831
  Receipt Date: 20150831
  Transmission Date: 20151125
  Serious: Yes (Life-Threatening, Disabling)
  Sender: FDA-Public Use
  Company Number: None

PATIENT
  Age: 54 Year
  Sex: Female
  Weight: 68.04 kg

DRUGS (6)
  1. EVEROLIMUS [Concomitant]
     Active Substance: EVEROLIMUS
  2. CALCIUM [Concomitant]
     Active Substance: CALCIUM
  3. MULTIVITAMIN W/DHA [Concomitant]
  4. ANDROGEL [Suspect]
     Active Substance: TESTOSTERONE
     Indication: CHRONIC FATIGUE SYNDROME
     Dosage: 1 PUMP (1 SQUIRT) APPLIED TO A SURFACE, USUALLY THE SKIN
  5. ATORVASTATIN [Concomitant]
     Active Substance: ATORVASTATIN
  6. LETROZOLE. [Concomitant]
     Active Substance: LETROZOLE

REACTIONS (4)
  - Precocious puberty [None]
  - Accidental exposure to product [None]
  - Breast cancer stage II [None]
  - Exposure via father [None]

NARRATIVE: CASE EVENT DATE: 20150615
